FAERS Safety Report 5759182-1 (Version None)
Quarter: 2008Q2

REPORT INFORMATION
  Report Type: 
  Country: None (occurrence: None)
  Receive Date: 20080604
  Receipt Date: 20080523
  Transmission Date: 20081010
  Serious: Yes (Hospitalization)
  Sender: FDA-Public Use
  Company Number: PL-PFIZER INC-2008038621

PATIENT
  Age: 40 Year
  Sex: Female

DRUGS (3)
  1. ZELDOX (CAPSULES) [Suspect]
     Indication: SCHIZOPHRENIA
     Dosage: DAILY DOSE:80MG
     Route: 048
     Dates: start: 20080422, end: 20080426
  2. OLANZAPINE [Concomitant]
     Route: 048
     Dates: start: 20060101, end: 20080422
  3. CHLORPROTHIXENE [Concomitant]
     Route: 048
     Dates: end: 20080422

REACTIONS (4)
  - ANXIETY [None]
  - PSYCHOMOTOR HYPERACTIVITY [None]
  - SLEEP DISORDER [None]
  - THINKING ABNORMAL [None]
